FAERS Safety Report 12456116 (Version 2)
Quarter: 2016Q2

REPORT INFORMATION
  Report Type: Spontaneous
  Country: US (occurrence: US)
  Receive Date: 20160610
  Receipt Date: 20160629
  Transmission Date: 20160815
  Serious: Yes (Other)
  Sender: FDA-Public Use
  Company Number: US-WEST-WARD PHARMACEUTICALS CORP.-US-H14001-16-00999

PATIENT
  Age: 37 Year
  Sex: Male

DRUGS (1)
  1. NAPROXEN. [Suspect]
     Active Substance: NAPROXEN
     Indication: MUSCLE STRAIN
     Route: 065

REACTIONS (3)
  - Iridocyclitis [Recovered/Resolved]
  - Fixed drug eruption [Recovered/Resolved]
  - Episcleritis [Recovered/Resolved]
